FAERS Safety Report 14505926 (Version 5)
Quarter: 2018Q3

REPORT INFORMATION
  Report Type: Spontaneous
  Country: US (occurrence: US)
  Receive Date: 20180208
  Receipt Date: 20180725
  Transmission Date: 20181010
  Serious: Yes (Hospitalization, Other)
  Sender: FDA-Public Use
  Company Number: US-JNJFOC-20180206772

PATIENT
  Age: 74 Year
  Sex: Female
  Weight: 51.71 kg

DRUGS (28)
  1. BIOTENE NOS [Concomitant]
     Active Substance: CETYLPYRIDINIUM CHLORIDE OR SODIUM FLUORIDE OR SODIUM MONOFLUOROPHOSPHATE OR GLUCOSE OXIDASE\LACTOFERRIN\LACTOPEROXIDASE BOVINE\LYSOZYME
     Indication: ANTIBIOTIC PROPHYLAXIS
     Route: 048
  2. DURAGESIC [Suspect]
     Active Substance: FENTANYL
     Indication: PAIN
     Route: 062
     Dates: start: 201511
  3. ASPIRIN. [Concomitant]
     Active Substance: ASPIRIN
     Indication: ANTICOAGULANT THERAPY
     Route: 065
     Dates: start: 2006
  4. BENADRYL [Concomitant]
     Active Substance: DIPHENHYDRAMINE HYDROCHLORIDE
     Indication: MULTIPLE ALLERGIES
     Route: 065
  5. HYDROCODONE [Concomitant]
     Active Substance: HYDROCODONE
     Indication: PAIN
     Route: 065
     Dates: start: 2004
  6. ESZOPICLONE. [Concomitant]
     Active Substance: ESZOPICLONE
     Indication: INSOMNIA
     Route: 065
  7. DURAGESIC [Suspect]
     Active Substance: FENTANYL
     Indication: PAIN
     Route: 062
     Dates: start: 2004
  8. TIZANIDINE. [Concomitant]
     Active Substance: TIZANIDINE
     Indication: MUSCLE SPASMS
     Dosage: ONE TO THREE TIMES DAILY
     Route: 065
     Dates: start: 2013
  9. MORPHINE [Concomitant]
     Active Substance: MORPHINE
     Indication: PAIN
     Route: 065
     Dates: start: 201511
  10. MAXZIDE [Concomitant]
     Active Substance: HYDROCHLOROTHIAZIDE\TRIAMTERENE
     Indication: FLUID RETENTION
     Dosage: 75/50
     Route: 065
     Dates: start: 2006
  11. POTASSIUM [Concomitant]
     Active Substance: POTASSIUM
     Indication: BLOOD POTASSIUM
     Dosage: 75/50
     Route: 065
     Dates: start: 2006
  12. TOCOPHEROL [Concomitant]
     Active Substance: TOCOPHEROL
     Indication: VITAMIN E DEFICIENCY
     Route: 065
  13. DURAGESIC [Suspect]
     Active Substance: FENTANYL
     Indication: PAIN
     Route: 062
     Dates: start: 2004, end: 2008
  14. LIDOCAINE. [Concomitant]
     Active Substance: LIDOCAINE
     Indication: SCIATICA
     Dosage: ONE TO THREE TIMES DAILY
     Route: 062
     Dates: start: 2012
  15. RESTASIS [Concomitant]
     Active Substance: CYCLOSPORINE
     Indication: DRY EYE
     Route: 047
     Dates: start: 2007
  16. MORPHINE SULFATE. [Concomitant]
     Active Substance: MORPHINE SULFATE
     Indication: PAIN
     Dosage: MORPHINE SULFATE ER
     Route: 065
     Dates: start: 201511
  17. DURAGESIC [Suspect]
     Active Substance: FENTANYL
     Indication: PAIN
     Route: 062
     Dates: start: 2008, end: 2015
  18. RESTASIS [Concomitant]
     Active Substance: CYCLOSPORINE
     Indication: HERPES ZOSTER
     Route: 047
     Dates: start: 2007
  19. VITAMIN B [Concomitant]
     Active Substance: VITAMIN B
     Indication: VITAMIN B COMPLEX DEFICIENCY
     Route: 065
  20. VALIUM [Concomitant]
     Active Substance: DIAZEPAM
     Indication: DEPRESSION
     Route: 065
  21. VALIUM [Concomitant]
     Active Substance: DIAZEPAM
     Indication: PAIN
     Route: 065
  22. FOLIC ACID. [Concomitant]
     Active Substance: FOLIC ACID
     Indication: FOLATE DEFICIENCY
     Route: 065
  23. MORPHINE SULFATE. [Concomitant]
     Active Substance: MORPHINE SULFATE
     Indication: PAIN
     Dosage: MORPHINE SULFATE IR
     Route: 065
     Dates: start: 201511
  24. PREMARIN [Concomitant]
     Active Substance: ESTROGENS, CONJUGATED
     Indication: UTERINE DISORDER
     Route: 065
     Dates: start: 1968
  25. SYNTHROID [Concomitant]
     Active Substance: LEVOTHYROXINE SODIUM
     Indication: HYPOTHYROIDISM
     Route: 065
     Dates: start: 1960
  26. PROMETHAZINE [Concomitant]
     Active Substance: PROMETHAZINE\PROMETHAZINE HYDROCHLORIDE
     Indication: NAUSEA
     Route: 065
  27. LIDOCAINE. [Concomitant]
     Active Substance: LIDOCAINE
     Indication: PAIN
     Dosage: ONE TO THREE TIMES DAILY
     Route: 062
     Dates: start: 2012
  28. DOCUSATE SODIUM. [Concomitant]
     Active Substance: DOCUSATE SODIUM
     Indication: CONSTIPATION
     Route: 048

REACTIONS (10)
  - Sepsis [Unknown]
  - Coma [Unknown]
  - Product adhesion issue [Unknown]
  - Osteoarthritis [Unknown]
  - Fall [Unknown]
  - Product outer packaging issue [Unknown]
  - Wrong technique in product usage process [Unknown]
  - Joint injury [Unknown]
  - Drug dose omission [Unknown]
  - Pain [Unknown]

NARRATIVE: CASE EVENT DATE: 2012
